FAERS Safety Report 16015698 (Version 1)
Quarter: 2019Q1

REPORT INFORMATION
  Report Type: Spontaneous
  Country: NL (occurrence: NL)
  Receive Date: 20190228
  Receipt Date: 20190228
  Transmission Date: 20190418
  Serious: Yes (Congenital Anomaly)
  Sender: FDA-Public Use
  Company Number: NL-TEVA-2019-NL-1017798

PATIENT
  Sex: Male

DRUGS (1)
  1. ESCITALOPRAM [Suspect]
     Active Substance: ESCITALOPRAM OXALATE
     Indication: MENTAL DISORDER
     Dosage: 10 MILLIGRAM DAILY; 1 DD 10 MG

REACTIONS (2)
  - Fallot^s tetralogy [Not Recovered/Not Resolved]
  - Maternal exposure during pregnancy [Unknown]
